FAERS Safety Report 8266894-7 (Version None)
Quarter: 2012Q2

REPORT INFORMATION
  Report Type: 
  Country: None (occurrence: None)
  Receive Date: 20120404
  Receipt Date: 20120404
  Transmission Date: 20120825
  Serious: Yes (Other)
  Sender: FDA-Public Use
  Company Number: None

PATIENT
  Age: 65 Year
  Sex: Female
  Weight: 56.6996 kg

DRUGS (1)
  1. NITROFURAN MONOHYD MACRO 100 MG [Suspect]
     Indication: URINARY TRACT INFECTION
     Dosage: 1 CAPSULE EVERY 12 HRS FOR 5 DAYS ORAL  1 PILL ON 11TH  1 PILL - 16TH
     Route: 048
     Dates: start: 20120311, end: 20120316

REACTIONS (1)
  - CONSTIPATION [None]
